FAERS Safety Report 9099740 (Version 3)
Quarter: 2013Q3

REPORT INFORMATION
  Report Type: Report from Study
  Country: US (occurrence: US)
  Receive Date: 20130214
  Receipt Date: 20130703
  Transmission Date: 20140515
  Serious: Yes (Life-Threatening, Hospitalization)
  Sender: FDA-Public Use
  Company Number: US-PFIZER INC-2013058011

PATIENT
  Age: 43 Year
  Sex: Female
  Weight: 61.6 kg

DRUGS (2)
  1. CRIZOTINIB [Suspect]
     Indication: NON-SMALL CELL LUNG CANCER
     Dosage: 200 MG, 2X/DAY
     Route: 048
     Dates: start: 20130104, end: 20130209
  2. DACOMITINIB [Suspect]
     Indication: NON-SMALL CELL LUNG CANCER
     Dosage: 30 MG, ONCE DAILY
     Route: 048
     Dates: start: 20130116, end: 20130209

REACTIONS (1)
  - Acute respiratory distress syndrome [Recovered/Resolved]
